FAERS Safety Report 8162809-0 (Version None)
Quarter: 2012Q1

REPORT INFORMATION
  Report Type: 
  Country: None (occurrence: None)
  Receive Date: 20120224
  Receipt Date: 20120221
  Transmission Date: 20120608
  Serious: Yes (Hospitalization)
  Sender: FDA-Public Use
  Company Number: JP-PFIZER INC-2012044833

PATIENT
  Age: 68 Year
  Sex: Female

DRUGS (8)
  1. NORVASC [Suspect]
     Dosage: 10 MG, 1X/DAY
     Route: 048
     Dates: start: 20111226, end: 20120110
  2. COTRIM [Concomitant]
     Dosage: UNK
     Route: 048
  3. NORVASC [Suspect]
     Indication: HYPERTENSION
     Dosage: 5MG DAILY
     Route: 048
     Dates: end: 20111225
  4. PREDNISOLONE [Concomitant]
     Dosage: UNK
     Route: 048
  5. RIMATIL [Concomitant]
     Dosage: UNK
     Route: 048
  6. CANDESARTAN CILEXETIL [Concomitant]
     Indication: HYPERTENSION
     Dosage: 4 MG, DAILY
     Route: 048
  7. LANSOPRAZOLE [Concomitant]
     Dosage: UNK
     Route: 048
  8. SITAGLIPTIN PHOSPHATE [Concomitant]
     Dosage: UNK
     Route: 048

REACTIONS (1)
  - RHEUMATOID ARTHRITIS [None]
